FAERS Safety Report 8999670 (Version 3)
Quarter: 2014Q2

REPORT INFORMATION
  Report Type: Report from Study
  Country: US (occurrence: US)
  Receive Date: 20130102
  Receipt Date: 20140408
  Transmission Date: 20141212
  Serious: Yes (Other)
  Sender: FDA-Public Use
  Company Number: US-ROCHE-1172805

PATIENT
  Age: 83 Year
  Sex: Male

DRUGS (3)
  1. AVASTIN [Suspect]
     Indication: PRODUCT USED FOR UNKNOWN INDICATION
     Route: 050
     Dates: start: 20090616
  2. XELODA [Suspect]
     Indication: COLORECTAL CANCER
     Dosage: 4 PILLS IN AM  4 PILLS IN PM
     Route: 048
     Dates: start: 20131003, end: 20131115
  3. ASPIRIN [Concomitant]
     Dosage: EVERYDAY
     Route: 048

REACTIONS (14)
  - Eye irritation [Recovering/Resolving]
  - Eye inflammation [Unknown]
  - Eye disorder [Unknown]
  - Vision blurred [Unknown]
  - Visual impairment [Unknown]
  - Vitreous floaters [Recovering/Resolving]
  - Diarrhoea [Recovered/Resolved]
  - Skin exfoliation [Recovered/Resolved]
  - Gastrointestinal pain [Recovered/Resolved]
  - Onychomycosis [Unknown]
  - Weight decreased [Unknown]
  - Skin exfoliation [Recovered/Resolved]
  - Aggression [Recovered/Resolved]
  - Abdominal pain [Recovered/Resolved]
